FAERS Safety Report 20693111 (Version 2)
Quarter: 2022Q2

REPORT INFORMATION
  Report Type: Report from Study
  Country: IT (occurrence: IT)
  Receive Date: 20220410
  Receipt Date: 20220504
  Transmission Date: 20220721
  Serious: Yes (Death, Hospitalization)
  Sender: FDA-Public Use
  Company Number: IT-NOVARTISPH-NVSC2022IT052928

PATIENT
  Age: 56 Year
  Sex: Male
  Weight: 98 kg

DRUGS (13)
  1. CRIZANLIZUMAB [Suspect]
     Active Substance: CRIZANLIZUMAB
     Indication: Sickle cell disease
     Dosage: 7.5 MG/KG
     Route: 042
     Dates: start: 20210216
  2. BISOPROLOL [Concomitant]
     Active Substance: BISOPROLOL
     Indication: Heart rate
     Dosage: UNK
     Route: 065
     Dates: start: 2017
  3. ENALAPRIL [Concomitant]
     Active Substance: ENALAPRIL
     Indication: Hypertension
     Dosage: UNK
     Route: 065
     Dates: start: 2017
  4. JD POVIDONE IODINE [Concomitant]
     Indication: Skin ulcer
     Dosage: UNK
     Route: 065
     Dates: start: 20211209
  5. HYALURONIC ACID [Concomitant]
     Active Substance: HYALURONIC ACID
     Indication: Skin ulcer
     Dosage: UNK
     Route: 065
     Dates: start: 20211209
  6. FITOSTIMOLINE [Concomitant]
     Indication: Ulcer
     Dosage: UNK
     Route: 065
     Dates: start: 20211209
  7. APIXABAN [Concomitant]
     Active Substance: APIXABAN
     Indication: Atrial fibrillation
     Dosage: UNK
     Route: 065
     Dates: start: 20210716
  8. HYDROXYUREA [Concomitant]
     Active Substance: HYDROXYUREA
     Indication: Sickle cell disease
     Dosage: UNK
     Route: 065
     Dates: start: 20201214
  9. GENTALYN BETA [Concomitant]
     Indication: Skin ulcer
     Dosage: UNK
     Route: 065
     Dates: start: 20220202
  10. METHYLPREDNISOLONE [Concomitant]
     Active Substance: METHYLPREDNISOLONE
     Indication: Product used for unknown indication
     Dosage: UNK
     Route: 065
     Dates: start: 202203, end: 202203
  11. BISOPROLOL FUMARATE [Concomitant]
     Active Substance: BISOPROLOL FUMARATE
     Indication: Atrial fibrillation
     Dosage: UNK
     Route: 065
     Dates: start: 20210716
  12. AMIODARONE [Concomitant]
     Active Substance: AMIODARONE
     Indication: Atrial fibrillation
     Dosage: UNK
     Route: 065
     Dates: start: 202203, end: 202203
  13. EPOETINA ALFA [Concomitant]
     Indication: Sickle cell disease
     Dosage: UNK
     Route: 065
     Dates: start: 202203, end: 202203

REACTIONS (3)
  - Cardiac arrest [Fatal]
  - Haemorrhage intracranial [Fatal]
  - Ulcer [Not Recovered/Not Resolved]

NARRATIVE: CASE EVENT DATE: 20220302
